FAERS Safety Report 5649872-3 (Version None)
Quarter: 2008Q1

REPORT INFORMATION
  Report Type: 
  Country: None (occurrence: None)
  Receive Date: 20080304
  Receipt Date: 20080227
  Transmission Date: 20080703
  Serious: No
  Sender: FDA-Public Use
  Company Number: US-BAXTER-2008BH000315

PATIENT
  Age: 44 Year
  Sex: Male
  Weight: 79 kg

DRUGS (2)
  1. HEPARIN SODIUM [Suspect]
     Indication: THROMBOSIS PROPHYLAXIS
     Route: 040
     Dates: start: 20080102, end: 20080102
  2. HEPARIN SODIUM [Suspect]
     Route: 041
     Dates: start: 20080102, end: 20080102

REACTIONS (4)
  - ANXIETY [None]
  - DYSPNOEA [None]
  - HYPERTENSION [None]
  - TACHYCARDIA [None]
